FAERS Safety Report 18034943 (Version 1)
Quarter: 2020Q3

REPORT INFORMATION
  Report Type: Spontaneous
  Country: US (occurrence: US)
  Receive Date: 20200716
  Receipt Date: 20200716
  Transmission Date: 20201103
  Serious: Yes (Other)
  Sender: FDA-Public Use
  Company Number: None

PATIENT
  Age: 51 Year
  Sex: Female
  Weight: 65.8 kg

DRUGS (16)
  1. DOCUSATE [Concomitant]
     Active Substance: DOCUSATE
     Dates: start: 20200628, end: 20200707
  2. DEXAMETHASONE IV [Concomitant]
     Active Substance: DEXAMETHASONE
     Dates: start: 20200627, end: 20200702
  3. LOSARTAN. [Concomitant]
     Active Substance: LOSARTAN
     Dates: start: 20200628, end: 20200707
  4. REMDESIVIR. [Suspect]
     Active Substance: REMDESIVIR
     Indication: COVID-19
     Dosage: ?          OTHER FREQUENCY:ONCE;?
     Route: 040
     Dates: start: 20200630, end: 20200701
  5. CHOLECALCIFEROL PO [Concomitant]
     Dates: start: 20200628, end: 20200707
  6. MULTIVITAMIN W/ MINERALS PO [Concomitant]
     Dates: start: 20200628, end: 20200707
  7. ACETAMINOPHEN PO [Concomitant]
     Dates: start: 20200629, end: 20200701
  8. ASCORBIC ACID PO [Concomitant]
     Dates: start: 20200628, end: 20200707
  9. RIVAROXABAN [Concomitant]
     Active Substance: RIVAROXABAN
     Dates: start: 20200628, end: 20200707
  10. AZITHROMYCIN IV [Concomitant]
     Dates: start: 20200629, end: 20200702
  11. SODIUM CHLORIDE 0.45% IV [Concomitant]
     Dates: start: 20200627, end: 20200703
  12. REGULAR INSULIN SQ [Concomitant]
     Dates: start: 20200627, end: 20200702
  13. ZINC SULFATE PO [Concomitant]
     Dates: start: 20200628, end: 20200707
  14. CEFTRIAXONE IV [Concomitant]
     Dates: start: 20200629, end: 20200705
  15. FUROSEMIDE IV PUSH [Concomitant]
     Dates: start: 20200630, end: 20200707
  16. ALBUTEROL INHALER [Concomitant]
     Active Substance: ALBUTEROL
     Dates: start: 20200630, end: 20200705

REACTIONS (2)
  - Aspartate aminotransferase increased [None]
  - Alanine aminotransferase increased [None]

NARRATIVE: CASE EVENT DATE: 20200701
